FAERS Safety Report 19429633 (Version 1)
Quarter: 2021Q2

REPORT INFORMATION
  Report Type: Spontaneous
  Country: US (occurrence: US)
  Receive Date: 20210617
  Receipt Date: 20210617
  Transmission Date: 20210717
  Serious: No
  Sender: FDA-Public Use
  Company Number: US-ELI_LILLY_AND_COMPANY-US202106008081

PATIENT
  Age: 54 Year
  Sex: Female

DRUGS (2)
  1. EMGALITY [Suspect]
     Active Substance: GALCANEZUMAB-GNLM
     Indication: CLUSTER HEADACHE
     Dosage: 120 MG, UNKNOWN (LOADING DOSE)
     Route: 065
     Dates: start: 20210615
  2. TROKENDI [Concomitant]
     Active Substance: TOPIRAMATE
     Indication: CLUSTER HEADACHE
     Dosage: 125 MG, UNKNOWN
     Route: 065

REACTIONS (1)
  - Prescribed underdose [Unknown]

NARRATIVE: CASE EVENT DATE: 20210615
